FAERS Safety Report 10855942 (Version 1)
Quarter: 2015Q1

REPORT INFORMATION
  Report Type: Spontaneous
  Country: US (occurrence: None)
  Receive Date: 20150218
  Receipt Date: 20150218
  Transmission Date: 20150721
  Serious: Yes (Hospitalization)
  Sender: FDA-Public Use
  Company Number: None

PATIENT
  Age: 29 Year
  Sex: Female
  Weight: 65.77 kg

DRUGS (5)
  1. NANDOLOL [Concomitant]
  2. NEULASTA [Suspect]
     Active Substance: PEGFILGRASTIM
     Indication: PLATELET COUNT INCREASED
     Dosage: GIVEN INTO/UNDER THE SKIN
  3. SPIRALACTONE [Concomitant]
  4. FUEROSMIDE [Concomitant]
  5. CETRUMN [Concomitant]

REACTIONS (5)
  - Headache [None]
  - Thinking abnormal [None]
  - Activities of daily living impaired [None]
  - Insomnia [None]
  - Drug ineffective [None]

NARRATIVE: CASE EVENT DATE: 20150213
